FAERS Safety Report 6971515-7 (Version None)
Quarter: 2010Q3

REPORT INFORMATION
  Report Type: 
  Country: None (occurrence: None)
  Receive Date: 20100908
  Receipt Date: 20100830
  Transmission Date: 20110219
  Serious: Yes (Death)
  Sender: FDA-Public Use
  Company Number: US-AMGEN-QUU432525

PATIENT
  Sex: Male

DRUGS (7)
  1. NPLATE [Suspect]
     Indication: IDIOPATHIC THROMBOCYTOPENIC PURPURA
     Dates: start: 20090507, end: 20100401
  2. CORTICOSTEROIDS [Concomitant]
     Dates: start: 20040131, end: 20040301
  3. RITUXIMAB [Concomitant]
     Dates: start: 20071023, end: 20071107
  4. CYCLOPHOSPHAMIDE [Concomitant]
     Dates: start: 20081006, end: 20090108
  5. VINCRISTINE [Concomitant]
     Dates: start: 20081006, end: 20090108
  6. DOXIL [Concomitant]
     Dates: start: 20081006, end: 20090108
  7. IMMU-G [Concomitant]

REACTIONS (1)
  - HAEMORRHAGE [None]
